FAERS Safety Report 6986239-X (Version None)
Quarter: 2010Q3

REPORT INFORMATION
  Report Type: 
  Country: None (occurrence: None)
  Receive Date: 20100915
  Receipt Date: 20090616
  Transmission Date: 20110219
  Serious: No
  Sender: FDA-Public Use
  Company Number: US-WYE-H09792709

PATIENT
  Age: 34 Year
  Sex: Female

DRUGS (3)
  1. PRISTIQ [Suspect]
     Indication: MAJOR DEPRESSION
     Dosage: INTERMITTENT  - 50 MG
     Route: 048
     Dates: start: 20081029
  2. PRISTIQ [Suspect]
     Route: 048
  3. NUVARING [Concomitant]

REACTIONS (1)
  - IRRITABILITY [None]
